FAERS Safety Report 5680499-3 (Version None)
Quarter: 2008Q1

REPORT INFORMATION
  Report Type: 
  Country: None (occurrence: None)
  Receive Date: 20080326
  Receipt Date: 20080317
  Transmission Date: 20080703
  Serious: Yes (Hospitalization)
  Sender: FDA-Public Use
  Company Number: BE-ELI_LILLY_AND_COMPANY-BE200803004329

PATIENT
  Sex: Male

DRUGS (8)
  1. PEMETREXED [Suspect]
     Indication: NON-SMALL CELL LUNG CANCER
     Dosage: 918 MEQ, UNK
     Route: 042
     Dates: start: 20080129
  2. PEMETREXED [Suspect]
     Dosage: 918 MG, UNKNOWN
     Route: 042
     Dates: start: 20080219
  3. RADIATION [Suspect]
     Indication: NON-SMALL CELL LUNG CANCER
     Dosage: 60GY IN 30 SESSIONS
     Route: 065
     Dates: end: 20080307
  4. VITAMIN B-12 [Concomitant]
     Indication: SUPPLEMENTATION THERAPY
     Dosage: 1000 UG, EVERY THREE WEEKS
     Route: 030
  5. TRAMADOL HCL [Concomitant]
     Indication: PAIN
     Dosage: 100 MG, DAILY (1/D)
     Route: 048
  6. OL-AMINE [Concomitant]
     Indication: SUPPLEMENTATION THERAPY
     Dosage: UNK UNK, DAILY (1/D)
     Route: 048
  7. SPIRIVA [Concomitant]
     Indication: DYSPNOEA
     Dosage: 18 UG, DAILY (1/D)
     Route: 055
  8. FORADIL [Concomitant]
     Indication: DYSPNOEA
     Dosage: 12 UG, 2/D
     Route: 055

REACTIONS (1)
  - RADIATION OESOPHAGITIS [None]
